FAERS Safety Report 10559569 (Version 1)
Quarter: 2014Q4

REPORT INFORMATION
  Report Type: Spontaneous
  Country: GB (occurrence: None)
  Receive Date: 20141030
  Receipt Date: 20141030
  Transmission Date: 20150529
  Serious: Yes (Other)
  Sender: FDA-Public Use
  Company Number: IMP_07974_2014

PATIENT
  Sex: Male

DRUGS (1)
  1. CABERGOLINE. [Suspect]
     Active Substance: CABERGOLINE
     Indication: PARKINSON^S DISEASE
     Dosage: PER DAY

REACTIONS (7)
  - Dopamine dysregulation syndrome [None]
  - Delusion [None]
  - Intentional overdose [None]
  - Jealous delusion [None]
  - Depression [None]
  - Sexual dysfunction [None]
  - Legal problem [None]
